FAERS Safety Report 10191151 (Version 2)
Quarter: 2014Q2

REPORT INFORMATION
  Report Type: Report from Study
  Country: IT (occurrence: IT)
  Receive Date: 20140523
  Receipt Date: 20140523
  Transmission Date: 20141212
  Serious: Yes (Other)
  Sender: FDA-Public Use
  Company Number: IT-CELGENEUS-083-50794-14032693

PATIENT
  Age: 78 Year
  Sex: Female

DRUGS (1)
  1. VIDAZA [Suspect]
     Indication: PRODUCT USED FOR UNKNOWN INDICATION
     Route: 065

REACTIONS (5)
  - Tachycardia [Unknown]
  - Rheumatic disorder [Unknown]
  - White blood cell count increased [Unknown]
  - Constipation [Unknown]
  - Contusion [Unknown]
